FAERS Safety Report 4676567-5 (Version None)
Quarter: 2005Q2

REPORT INFORMATION
  Report Type: 
  Country: None (occurrence: None)
  Receive Date: 20050527
  Receipt Date: 20040616
  Transmission Date: 20051028
  Serious: Yes (Congenital Anomaly)
  Sender: FDA-Public Use
  Company Number: US-ROCHE-371372

PATIENT
  Sex: Male
  Weight: 3.5 kg

DRUGS (2)
  1. COPEGUS [Suspect]
     Indication: DRUG USE FOR UNKNOWN INDICATION
     Dates: start: 20040115, end: 20040609
  2. PEGASYS [Suspect]
     Indication: DRUG USE FOR UNKNOWN INDICATION
     Dates: start: 20040115, end: 20040609

REACTIONS (3)
  - PREGNANCY OF PARTNER [None]
  - SUPERNUMERARY NIPPLE [None]
  - TRANSMISSION OF DRUG VIA SEMEN [None]
